FAERS Safety Report 6629652-2 (Version None)
Quarter: 2010Q1

REPORT INFORMATION
  Report Type: 
  Country: None (occurrence: None)
  Receive Date: 20100311
  Receipt Date: 20100308
  Transmission Date: 20100710
  Serious: Yes (Hospitalization, Other)
  Sender: FDA-Public Use
  Company Number: MA-ROXANE LABORATORIES, INC.-2010-RO-00240RO

PATIENT
  Age: 20 Year
  Sex: Female

DRUGS (13)
  1. AMLODIPINE [Suspect]
     Indication: SUICIDE ATTEMPT
     Dosage: 420 MG
  2. CALCIUM GLUCONATE [Suspect]
     Indication: HYPOTENSION
     Route: 042
  3. CALCIUM GLUCONATE [Suspect]
     Route: 042
  4. EPHEDRINE SUL CAP [Suspect]
     Indication: HYPOTENSION
  5. EPINEPHRINE [Suspect]
     Indication: HYPOTENSION
  6. SUCCINYLCHOLINE CHLORIDE [Suspect]
     Indication: PREMEDICATION
     Dosage: 90 MG
  7. HYPNOMIDATE [Suspect]
     Indication: PREMEDICATION
  8. FENTANYL [Suspect]
     Indication: PREMEDICATION
     Dosage: 250 MCG
  9. INSULIN [Concomitant]
     Indication: DRUG TOXICITY
     Route: 042
  10. INSULIN [Concomitant]
     Route: 042
  11. DEXTROSE [Concomitant]
     Indication: DRUG TOXICITY
     Dosage: 50 G
  12. DEXTROSE [Concomitant]
  13. GLUCOSE [Concomitant]
     Indication: DRUG TOXICITY

REACTIONS (6)
  - COMA SCALE ABNORMAL [None]
  - DRUG INEFFECTIVE [None]
  - DRUG TOXICITY [None]
  - HYPOTENSION [None]
  - SINUS TACHYCARDIA [None]
  - SOMNOLENCE [None]
